FAERS Safety Report 9073393 (Version 1)
Quarter: 2013Q1

REPORT INFORMATION
  Report Type: Report from Study
  Country: US (occurrence: US)
  Receive Date: 20130129
  Receipt Date: 20130129
  Transmission Date: 20140127
  Serious: No
  Sender: FDA-Public Use
  Company Number: US-ABBOTT-12P-163-0933709-00

PATIENT
  Age: 15 Year
  Sex: Male

DRUGS (6)
  1. HUMIRA 40 MG/ 0.8 ML PRE-FILLED SYRINGE [Suspect]
     Indication: JUVENILE IDIOPATHIC ARTHRITIS
     Dates: start: 20120222
  2. PREVACID [Concomitant]
     Indication: PROPHYLAXIS
  3. PREVACID [Concomitant]
     Indication: PRODUCT USED FOR UNKNOWN INDICATION
  4. VYVANSE [Concomitant]
     Indication: ATTENTION DEFICIT/HYPERACTIVITY DISORDER
  5. ONDANSETRON [Concomitant]
     Indication: NAUSEA
  6. ZYRTEC OTC [Concomitant]
     Indication: HYPERSENSITIVITY
     Dosage: NIGHTLY

REACTIONS (2)
  - Psoriasis [Not Recovered/Not Resolved]
  - Gastroenteritis viral [Unknown]
